FAERS Safety Report 9665326 (Version 1)
Quarter: 2013Q4

REPORT INFORMATION
  Report Type: Spontaneous
  Country: FR (occurrence: FR)
  Receive Date: 20131101
  Receipt Date: 20131101
  Transmission Date: 20140711
  Serious: Yes (Hospitalization)
  Sender: FDA-Public Use
  Company Number: FR-ROCHE-1294714

PATIENT
  Age: 58 Year
  Sex: Male

DRUGS (8)
  1. AVASTIN [Suspect]
     Indication: ADENOCARCINOMA OF COLON
     Route: 042
  2. OXALIPLATIN [Suspect]
     Indication: ADENOCARCINOMA OF COLON
     Route: 042
     Dates: start: 20120820
  3. EMEND [Suspect]
     Indication: VOMITING
     Route: 048
     Dates: start: 20130911, end: 20130911
  4. ZOPHREN [Suspect]
     Indication: VOMITING
     Route: 048
     Dates: start: 20130911, end: 20130911
  5. CORTANCYL [Suspect]
     Indication: VOMITING
     Route: 048
     Dates: start: 20130911, end: 20130911
  6. JANUVIA [Concomitant]
     Route: 065
  7. PRAVASTATINE [Concomitant]
     Route: 065
  8. AMAREL [Concomitant]
     Route: 065

REACTIONS (2)
  - Anaphylactic shock [Recovered/Resolved]
  - Rash erythematous [Recovered/Resolved]
